FAERS Safety Report 5658411-2 (Version None)
Quarter: 2008Q1

REPORT INFORMATION
  Report Type: 
  Country: None (occurrence: None)
  Receive Date: 20080310
  Receipt Date: 20070212
  Transmission Date: 20080703
  Serious: No
  Sender: FDA-Public Use
  Company Number: US-BAYER-200710494BCC

PATIENT
  Age: 71 Year
  Sex: Female

DRUGS (6)
  1. ALEVE [Suspect]
     Indication: ARTHRALGIA
     Dosage: TOTAL DAILY DOSE: 440 MG  UNIT DOSE: 220 MG
     Route: 048
     Dates: start: 20070205, end: 20070208
  2. SYNTHROID [Concomitant]
  3. CENTRUM SILVER [Concomitant]
  4. CYMBALTA [Concomitant]
  5. NORVASC [Concomitant]
  6. VIVELLE-DOT [Concomitant]

REACTIONS (1)
  - DYSPEPSIA [None]
